FAERS Safety Report 18463820 (Version 1)
Quarter: 2020Q4

REPORT INFORMATION
  Report Type: Spontaneous
  Country: US (occurrence: US)
  Receive Date: 20201104
  Receipt Date: 20201104
  Transmission Date: 20210114
  Serious: Yes (Hospitalization, Other)
  Sender: FDA-Public Use
  Company Number: US-ELI_LILLY_AND_COMPANY-US202010013431

PATIENT
  Age: 64 Year
  Sex: Female

DRUGS (1)
  1. ZYPREXA [Suspect]
     Active Substance: OLANZAPINE
     Indication: PSYCHOTIC SYMPTOM
     Dosage: UNK, UNKNOWN
     Route: 065

REACTIONS (8)
  - Erythema [Recovering/Resolving]
  - Hypotension [Recovering/Resolving]
  - Neutropenia [Recovered/Resolved]
  - Agitation [Recovering/Resolving]
  - Oedema peripheral [Recovering/Resolving]
  - Hypothyroidism [Recovering/Resolving]
  - Hypothermia [Recovering/Resolving]
  - Bradycardia [Recovering/Resolving]
